FAERS Safety Report 7926879-4 (Version None)
Quarter: 2011Q4

REPORT INFORMATION
  Report Type: 
  Country: None (occurrence: None)
  Receive Date: 20111118
  Receipt Date: 20111111
  Transmission Date: 20120403
  Serious: Yes (Hospitalization)
  Sender: FDA-Public Use
  Company Number: JP-PFIZER INC-2011277605

PATIENT
  Age: 52 Year
  Sex: Male

DRUGS (2)
  1. ZITHROMAX [Suspect]
     Indication: PYREXIA
     Dosage: 500 MG, 1X/DAY
     Route: 048
     Dates: start: 20111011, end: 20111014
  2. CEFACLOR [Suspect]
     Indication: TOOTH EXTRACTION

REACTIONS (3)
  - PYREXIA [None]
  - HEPATITIS FULMINANT [None]
  - HEPATIC ENCEPHALOPATHY [None]
